FAERS Safety Report 8425441 (Version 3)
Quarter: 2013Q3

REPORT INFORMATION
  Report Type: Spontaneous
  Country: FR (occurrence: FR)
  Receive Date: 20120224
  Receipt Date: 20130823
  Transmission Date: 20140515
  Serious: Yes (Hospitalization, Other)
  Sender: FDA-Public Use
  Company Number: FR-ELI_LILLY_AND_COMPANY-FR201202003191

PATIENT
  Age: 76 Year
  Sex: Male

DRUGS (3)
  1. ALIMTA [Suspect]
     Indication: LUNG ADENOCARCINOMA
     Dosage: 1050 MG, SINGLE
     Route: 042
     Dates: start: 20111103, end: 20111103
  2. GEMZAR [Suspect]
     Indication: LUNG ADENOCARCINOMA
  3. TARCEVA [Concomitant]
     Indication: LUNG ADENOCARCINOMA
     Dosage: 150 MG, SINGLE
     Dates: start: 201106, end: 20111031

REACTIONS (6)
  - Oedema [Recovered/Resolved]
  - Erythema [Recovered/Resolved]
  - Toxic skin eruption [Recovered/Resolved]
  - Xerosis [Recovered/Resolved]
  - Cheilitis [Recovered/Resolved]
  - Disease progression [Unknown]
